FAERS Safety Report 8069318-8 (Version None)
Quarter: 2012Q1

REPORT INFORMATION
  Report Type: 
  Country: None (occurrence: None)
  Receive Date: 20120125
  Receipt Date: 20120117
  Transmission Date: 20120608
  Serious: Yes (Disabling, Other)
  Sender: FDA-Public Use
  Company Number: GB-JNJFOC-20110510588

PATIENT
  Sex: Female

DRUGS (1)
  1. RISPERDAL CONSTA [Suspect]
     Indication: SCHIZOPHRENIA, PARANOID TYPE
     Route: 030

REACTIONS (6)
  - FALL [None]
  - BALANCE DISORDER [None]
  - MUSCULOSKELETAL STIFFNESS [None]
  - UNEVALUABLE EVENT [None]
  - GAIT DISTURBANCE [None]
  - THERMAL BURN [None]
